FAERS Safety Report 23646613 (Version 1)
Quarter: 2024Q1

REPORT INFORMATION
  Report Type: Spontaneous
  Country: CN (occurrence: CN)
  Receive Date: 20240319
  Receipt Date: 20240319
  Transmission Date: 20240410
  Serious: Yes (Other)
  Sender: FDA-Public Use
  Company Number: None

PATIENT
  Age: 55 Year
  Sex: Female
  Weight: 74 kg

DRUGS (5)
  1. CYCLOPHOSPHAMIDE [Suspect]
     Active Substance: CYCLOPHOSPHAMIDE
     Indication: Breast cancer female
     Dosage: 1 G, ONE TIME IN ONE DAY, DILUTED WITH 50 ML OF 0.9% SODIUM CHLORIDE, D1
     Route: 041
     Dates: start: 20240206, end: 20240206
  2. SODIUM CHLORIDE [Suspect]
     Active Substance: SODIUM CHLORIDE
     Indication: Medication dilution
     Dosage: (0.9%) 50 ML, ONE TIME IN ONE DAY, USED TO DILUTE 1 G OF CYCLOPHOSPHAMIDE, DOSAGE FORM: INJECTION
     Route: 041
     Dates: start: 20240206, end: 20240206
  3. SODIUM CHLORIDE [Suspect]
     Active Substance: SODIUM CHLORIDE
     Dosage: (0.9%) 100 ML, ONE TIME IN ONE DAY, DOSAGE FORM: INJECTION, ALONG WITH 50 ML OF STERILE WATER FOR IN
     Route: 041
     Dates: start: 20240206, end: 20240206
  4. WATER FOR INJECTION [Suspect]
     Active Substance: WATER
     Indication: Medication dilution
     Dosage: 50 ML, ONE TIME IN ONE DAY, ALONG WITH 100 ML OF 0.9% SODIUM CHLORIDE USED TO DILUTE 130 MG OF EPIRU
     Route: 041
     Dates: start: 20240206, end: 20240206
  5. EPIRUBICIN HYDROCHLORIDE [Suspect]
     Active Substance: EPIRUBICIN HYDROCHLORIDE
     Indication: Breast cancer female
     Dosage: 130 MG, ONE TIME IN ONE DAY, DILUTED WITH 100 ML OF 0.9% SODIUM CHLORIDE AND 50 ML OF STERILE WATER
     Route: 041
     Dates: start: 20240206, end: 20240206

REACTIONS (2)
  - Leukopenia [Unknown]
  - Liver injury [Unknown]

NARRATIVE: CASE EVENT DATE: 20240226
